FAERS Safety Report 7700857-2 (Version None)
Quarter: 2011Q3

REPORT INFORMATION
  Report Type: 
  Country: None (occurrence: None)
  Receive Date: 20110822
  Receipt Date: 20110808
  Transmission Date: 20111222
  Serious: Yes (Other)
  Sender: FDA-Public Use
  Company Number: PHHY2011BR72562

PATIENT
  Sex: Female

DRUGS (2)
  1. LASIX [Suspect]
  2. DIOVAN [Suspect]
     Dosage: 80 MG, UNK

REACTIONS (5)
  - NEOPLASM MALIGNANT [None]
  - MUSCULOSKELETAL PAIN [None]
  - ARTHRITIS [None]
  - BLOOD PRESSURE INCREASED [None]
  - OSTEOARTHRITIS [None]
